FAERS Safety Report 17131109 (Version 4)
Quarter: 2020Q1

REPORT INFORMATION
  Report Type: Spontaneous
  Country: CA (occurrence: CA)
  Receive Date: 20191209
  Receipt Date: 20200205
  Transmission Date: 20200409
  Serious: Yes (Hospitalization, Other)
  Sender: FDA-Public Use
  Company Number: CA-GILEAD-2019-0441705

PATIENT
  Age: 16 Year
  Sex: Female

DRUGS (11)
  1. TADALAFIL. [Suspect]
     Active Substance: TADALAFIL
     Indication: PRODUCT USED FOR UNKNOWN INDICATION
     Dosage: 40 MG, 1D
     Route: 048
  2. TADALAFIL. [Suspect]
     Active Substance: TADALAFIL
     Dosage: 40 MG, 1D
     Route: 048
  3. CARBAMAZEPINE. [Suspect]
     Active Substance: CARBAMAZEPINE
     Dosage: 300 MG, BID
     Route: 048
     Dates: start: 200909
  4. SELEXIPAG [Suspect]
     Active Substance: SELEXIPAG
     Indication: PRODUCT USED FOR UNKNOWN INDICATION
     Dosage: 1400 UG, BID
     Route: 048
  5. UPTRAVI [Suspect]
     Active Substance: SELEXIPAG
     Indication: PULMONARY HYPERTENSION
     Dosage: UNK 1500QHS/400MG
     Route: 065
     Dates: start: 201807
  6. CARBAMAZEPINE. [Suspect]
     Active Substance: CARBAMAZEPINE
     Dosage: 400 MG, BID
     Route: 065
  7. AMBRISENTAN [Suspect]
     Active Substance: AMBRISENTAN
     Dosage: 10 MG, QD
     Route: 048
  8. AMBRISENTAN [Suspect]
     Active Substance: AMBRISENTAN
     Dosage: 10 MG, QD
     Route: 048
  9. ADCIRCA [Suspect]
     Active Substance: TADALAFIL
     Indication: PULMONARY ARTERIAL HYPERTENSION
     Dosage: 40 MG, QD
     Route: 065
     Dates: start: 20190327
  10. AMBRISENTAN [Suspect]
     Active Substance: AMBRISENTAN
     Indication: PULMONARY ARTERIAL HYPERTENSION
     Dosage: UNK
     Route: 065
     Dates: start: 20190327
  11. CARBAMAZEPINE. [Suspect]
     Active Substance: CARBAMAZEPINE
     Indication: SEIZURE
     Dosage: 1 DF, BID
     Route: 048

REACTIONS (18)
  - Loss of consciousness [Recovering/Resolving]
  - Epistaxis [Unknown]
  - Kidney infection [Unknown]
  - Metapneumovirus infection [Recovering/Resolving]
  - Generalised tonic-clonic seizure [Unknown]
  - Fatigue [Unknown]
  - Cardiac arrest [Unknown]
  - Syncope [Recovering/Resolving]
  - Rhinorrhoea [Unknown]
  - Pneumonia [Recovering/Resolving]
  - Systolic dysfunction [Unknown]
  - Hypertension [Recovering/Resolving]
  - Pallor [Unknown]
  - Pyrexia [Unknown]
  - Right ventricular dilatation [Unknown]
  - Dizziness [Unknown]
  - Vomiting [Unknown]
  - Pulse abnormal [Unknown]

NARRATIVE: CASE EVENT DATE: 20191125
